FAERS Safety Report 12330628 (Version 1)
Quarter: 2016Q2

REPORT INFORMATION
  Report Type: Spontaneous
  Country: US (occurrence: None)
  Receive Date: 20160503
  Receipt Date: 20160503
  Transmission Date: 20160815
  Serious: Yes (Other)
  Sender: FDA-Public Use
  Company Number: None

PATIENT
  Age: 42 Year
  Sex: Female

DRUGS (1)
  1. LUPRON DEPOT [Suspect]
     Active Substance: LEUPROLIDE ACETATE
     Indication: ENDOMETRIOSIS
     Route: 030
     Dates: start: 20160104, end: 20160413

REACTIONS (3)
  - Contraindication to medical treatment [None]
  - Maternal exposure during pregnancy [None]
  - Drug monitoring procedure not performed [None]

NARRATIVE: CASE EVENT DATE: 20160502
